FAERS Safety Report 9807434 (Version 1)
Quarter: 2014Q1

REPORT INFORMATION
  Report Type: Spontaneous
  Country: US (occurrence: US)
  Receive Date: 20140110
  Receipt Date: 20140110
  Transmission Date: 20141002
  Serious: No
  Sender: FDA-Public Use
  Company Number: US-PFIZER INC-2014006634

PATIENT
  Sex: Male

DRUGS (2)
  1. PRISTIQ [Suspect]
     Indication: DEPRESSION
     Dosage: 100 MG, UNK
     Dates: end: 201312
  2. PRISTIQ [Suspect]
     Dosage: 150 MG, UNK
     Dates: start: 201312

REACTIONS (2)
  - Depression [Unknown]
  - Emotional disorder [Unknown]
